FAERS Safety Report 25401053 (Version 1)
Quarter: 2025Q2

REPORT INFORMATION
  Report Type: Spontaneous
  Country: CN (occurrence: CN)
  Receive Date: 20250605
  Receipt Date: 20250605
  Transmission Date: 20250716
  Serious: Yes (Other)
  Sender: MERCK SHARP & DOHME LLC
  Company Number: CN-009507513-2290274

PATIENT
  Age: 57 Year
  Sex: Male

DRUGS (6)
  1. NOXAFIL [Suspect]
     Active Substance: POSACONAZOLE
     Indication: Anti-infective therapy
     Route: 048
     Dates: start: 20250420, end: 20250422
  2. NOXAFIL [Suspect]
     Active Substance: POSACONAZOLE
     Indication: Anti-infective therapy
     Route: 048
     Dates: start: 20250419, end: 20250419
  3. NOXAFIL [Suspect]
     Active Substance: POSACONAZOLE
     Indication: Anti-infective therapy
     Route: 048
     Dates: start: 20250425, end: 20250427
  4. AMPHOTERICIN B [Suspect]
     Active Substance: AMPHOTERICIN B
     Indication: Anti-infective therapy
     Route: 041
     Dates: start: 20250423, end: 20250427
  5. AMPHOTERICIN B [Suspect]
     Active Substance: AMPHOTERICIN B
     Indication: Anti-infective therapy
     Route: 041
     Dates: start: 20250411, end: 20250415
  6. AMPHOTERICIN B [Suspect]
     Active Substance: AMPHOTERICIN B
     Indication: Anti-infective therapy
     Route: 041
     Dates: start: 20250418, end: 20250422

REACTIONS (3)
  - Bronchopulmonary aspergillosis [Unknown]
  - Pyrexia [Recovering/Resolving]
  - Chest discomfort [Recovering/Resolving]

NARRATIVE: CASE EVENT DATE: 20250101
